FAERS Safety Report 16474633 (Version 2)
Quarter: 2019Q3

REPORT INFORMATION
  Report Type: Spontaneous
  Country: DE (occurrence: DE)
  Receive Date: 20190625
  Receipt Date: 20190805
  Transmission Date: 20191004
  Serious: Yes (Hospitalization, Other)
  Sender: FDA-Public Use
  Company Number: DE-009507513-1906DEU009033

PATIENT
  Age: 45 Year
  Sex: Male
  Weight: 74 kg

DRUGS (7)
  1. MIRTAZAPINE. [Suspect]
     Active Substance: MIRTAZAPINE
     Dosage: 15 MILLIGRAM, AT NIGHT
     Route: 048
  2. TESTOGEL [Concomitant]
     Active Substance: TESTOSTERONE
     Indication: SECONDARY HYPOGONADISM
  3. MIRTAZAPINE. [Suspect]
     Active Substance: MIRTAZAPINE
     Indication: INSOMNIA
     Dosage: 7.5 MILLIGRAM, HS
     Route: 048
     Dates: start: 20170208, end: 201704
  4. MIRTAZELON [Concomitant]
     Indication: INSOMNIA
     Dosage: 15 MILLIGRAM, 0-0-0-1/2
     Route: 048
  5. MIRTAZAPINE. [Suspect]
     Active Substance: MIRTAZAPINE
     Indication: DEPRESSION
     Dosage: 7.5 - 15 MG 0-0-0-1
     Route: 048
     Dates: start: 2013, end: 201612
  6. MIRTAZAPINE. [Suspect]
     Active Substance: MIRTAZAPINE
     Dosage: 7.5 MILLIGRAM, AT NIGHT
     Route: 048
     Dates: start: 20190517
  7. MIRTAZAPINE. [Suspect]
     Active Substance: MIRTAZAPINE
     Dosage: 0.5 DOSAGE FORM, QPM
     Dates: start: 20190606

REACTIONS (18)
  - Obsessive-compulsive personality disorder [Unknown]
  - Hepatitis [Unknown]
  - Dyspepsia [Unknown]
  - Wrong technique in product usage process [Unknown]
  - Varicocele [Unknown]
  - Sleep apnoea syndrome [Unknown]
  - Abdominal discomfort [Recovered/Resolved]
  - Blood pressure abnormal [Unknown]
  - Rash [Unknown]
  - Benign prostatic hyperplasia [Unknown]
  - Paraesthesia [Unknown]
  - Depression [Unknown]
  - Syncope [Unknown]
  - Abnormal faeces [Unknown]
  - Drug ineffective [Unknown]
  - Influenza like illness [Unknown]
  - Perioral dermatitis [Unknown]
  - Thyroid mass [Unknown]

NARRATIVE: CASE EVENT DATE: 20130926
